FAERS Safety Report 24564672 (Version 3)
Quarter: 2025Q1

REPORT INFORMATION
  Report Type: Spontaneous
  Country: AT (occurrence: AT)
  Receive Date: 20241030
  Receipt Date: 20250102
  Transmission Date: 20250408
  Serious: Yes (Other)
  Sender: REGENERON
  Company Number: AT-BAYER-2024A137203

PATIENT
  Age: 70 Year
  Sex: Male

DRUGS (1)
  1. EYLEA HD [Suspect]
     Active Substance: AFLIBERCEPT
     Indication: Product used for unknown indication
     Route: 031

REACTIONS (1)
  - Uveitis [Unknown]
